FAERS Safety Report 10482649 (Version 8)
Quarter: 2020Q4

REPORT INFORMATION
  Report Type: Report from Study
  Country: JP (occurrence: JP)
  Receive Date: 20140929
  Receipt Date: 20201201
  Transmission Date: 20210113
  Serious: Yes (Life-Threatening, Hospitalization)
  Sender: FDA-Public Use
  Company Number: JP-PFIZER INC-2014268167

PATIENT
  Age: 57 Year
  Sex: Female
  Weight: 46 kg

DRUGS (11)
  1. XELJANZ [Suspect]
     Active Substance: TOFACITINIB CITRATE
     Indication: RHEUMATOID VASCULITIS
     Dosage: 5 MG, 1X/DAY
     Route: 048
     Dates: start: 20140822, end: 20140916
  2. DORNER [Concomitant]
     Active Substance: BERAPROST SODIUM
     Dosage: UNK
     Route: 048
     Dates: start: 20050926
  3. FAMOTIDINE D [Concomitant]
     Active Substance: FAMOTIDINE
     Dosage: UNK
     Route: 048
     Dates: start: 20050926
  4. REBAMIPIDE [Concomitant]
     Active Substance: REBAMIPIDE
     Dosage: UNK
     Route: 048
     Dates: start: 20090314
  5. LUPRAC [Concomitant]
     Active Substance: TORSEMIDE
     Dosage: UNK
     Route: 048
     Dates: start: 20070828
  6. LOXONIN [Concomitant]
     Active Substance: LOXOPROFEN SODIUM
     Dosage: UNK
     Route: 048
     Dates: start: 20090314
  7. PREDONINE [Suspect]
     Active Substance: PREDNISOLONE
     Dosage: 10 MG, DAILY
     Route: 048
     Dates: start: 20030926
  8. SELTOUCH [Concomitant]
     Active Substance: FELBINAC
     Dosage: UNK
     Route: 062
     Dates: start: 20110530
  9. ALLEGRA [Concomitant]
     Active Substance: FEXOFENADINE HYDROCHLORIDE
     Dosage: UNK
     Route: 048
     Dates: start: 20070828
  10. AMLODIPINE [Concomitant]
     Active Substance: AMLODIPINE BESYLATE
     Dosage: UNK
     Route: 048
     Dates: start: 20140822
  11. ALOSITOL [Concomitant]
     Active Substance: ALLOPURINOL
     Dosage: UNK
     Route: 048
     Dates: start: 20070828

REACTIONS (6)
  - Abscess neck [Recovered/Resolved]
  - Acute kidney injury [Recovered/Resolved with Sequelae]
  - Disseminated intravascular coagulation [Recovered/Resolved]
  - Sepsis [Recovered/Resolved with Sequelae]
  - Pyrexia [Recovered/Resolved]
  - Muscle abscess [Recovered/Resolved]

NARRATIVE: CASE EVENT DATE: 20140909
